FAERS Safety Report 7412579-6 (Version None)
Quarter: 2011Q2

REPORT INFORMATION
  Report Type: 
  Country: None (occurrence: None)
  Receive Date: 20110413
  Receipt Date: 20110407
  Transmission Date: 20111010
  Serious: Yes (Death)
  Sender: FDA-Public Use
  Company Number: US-CELGENEUS-163-21880-11032748

PATIENT
  Sex: Female

DRUGS (4)
  1. REVLIMID [Suspect]
     Dosage: 10 MILLIGRAM
     Route: 048
     Dates: start: 20110201
  2. DECADRON [Concomitant]
     Indication: MULTIPLE MYELOMA
     Dosage: 8 MILLIGRAM
     Route: 048
     Dates: start: 20100101, end: 20110301
  3. ZOMETA [Concomitant]
     Indication: MULTIPLE MYELOMA
     Dosage: 4 GRAM
     Route: 051
     Dates: start: 20080101, end: 20110301
  4. REVLIMID [Suspect]
     Indication: MULTIPLE MYELOMA
     Dosage: 5 MILLIGRAM
     Route: 048
     Dates: start: 20100901

REACTIONS (3)
  - SEPSIS [None]
  - HYPERVISCOSITY SYNDROME [None]
  - MULTIPLE MYELOMA [None]
